FAERS Safety Report 6115449-9 (Version None)
Quarter: 2009Q1

REPORT INFORMATION
  Report Type: 
  Country: None (occurrence: None)
  Receive Date: 20090313
  Receipt Date: 20090216
  Transmission Date: 20090719
  Serious: No
  Sender: FDA-Public Use
  Company Number: FR-EISAI MEDICAL RESEARCH-E2090-00659-SPO-FR

PATIENT
  Age: 40 Year
  Sex: Female

DRUGS (4)
  1. ZONEGRAN [Suspect]
     Indication: EPILEPSY
     Dosage: UNKNOWN
     Route: 048
  2. ZONEGRAN [Suspect]
     Route: 048
     Dates: start: 20081101, end: 20080101
  3. ZONEGRAN [Suspect]
     Dosage: UNKNOWN
     Route: 048
     Dates: start: 20080101, end: 20081208
  4. TRILEPTAL [Concomitant]
     Indication: EPILEPSY
     Route: 048
     Dates: end: 20081101

REACTIONS (2)
  - PRURITUS [None]
  - RASH GENERALISED [None]
